FAERS Safety Report 19577627 (Version 1)
Quarter: 2021Q3

REPORT INFORMATION
  Report Type: Spontaneous
  Country: AU (occurrence: AU)
  Receive Date: 20210719
  Receipt Date: 20210719
  Transmission Date: 20211014
  Serious: Yes (Hospitalization, Other)
  Sender: FDA-Public Use
  Company Number: AU-ORION CORPORATION ORION PHARMA-21_00015211

PATIENT
  Age: 91 Year
  Sex: Female

DRUGS (6)
  1. FLUCLOXACILLIN [Interacting]
     Active Substance: FLUCLOXACILLIN
     Indication: SKIN REACTION
     Route: 042
  2. SILVER SULPHADIAZINE [Concomitant]
     Active Substance: SILVER SULFADIAZINE
     Indication: SKIN REACTION
     Route: 061
  3. PIPERACILLIN. [Interacting]
     Active Substance: PIPERACILLIN SODIUM
     Indication: SKIN REACTION
     Route: 042
  4. GENTAMICIN. [Concomitant]
     Active Substance: GENTAMICIN
     Indication: SKIN REACTION
     Dosage: FROM DAY 2
     Route: 065
  5. FOLINIC ACID [Concomitant]
     Active Substance: LEUCOVORIN
     Route: 048
  6. METHOTREXATE. [Suspect]
     Active Substance: METHOTREXATE
     Indication: PSORIASIS
     Dosage: 2.5 MG THREE TIMES A WEEK
     Route: 065

REACTIONS (5)
  - Neutropenia [Unknown]
  - Idiosyncratic drug reaction [Unknown]
  - Drug interaction [Unknown]
  - Thrombocytopenia [Unknown]
  - Product use issue [Unknown]
